FAERS Safety Report 19009330 (Version 1)
Quarter: 2021Q1

REPORT INFORMATION
  Report Type: Spontaneous
  Country: VN (occurrence: VN)
  Receive Date: 20210315
  Receipt Date: 20210315
  Transmission Date: 20210420
  Serious: Yes (Hospitalization, Other)
  Sender: FDA-Public Use
  Company Number: VN-ROCHE-2788141

PATIENT
  Age: 62 Year
  Sex: Male

DRUGS (1)
  1. ACTILYSE [Suspect]
     Active Substance: ALTEPLASE
     Indication: CEREBRAL INFARCTION
     Dosage: TOTAL DOSE: 55 MG
     Route: 065

REACTIONS (3)
  - Cerebral artery occlusion [Unknown]
  - Carotid artery occlusion [Unknown]
  - Condition aggravated [Unknown]
